FAERS Safety Report 7383306-6 (Version None)
Quarter: 2011Q1

REPORT INFORMATION
  Report Type: 
  Country: None (occurrence: None)
  Receive Date: 20110324
  Receipt Date: 20110324
  Transmission Date: 20110831
  Serious: Yes (Other)
  Sender: FDA-Public Use
  Company Number: None

PATIENT
  Sex: Female
  Weight: 70 kg

DRUGS (1)
  1. DOCETAXEL (TAXOTERE) [Suspect]
     Indication: BREAST CANCER
     Dosage: 100ML/HR X 5 MIN IV
     Route: 042
     Dates: start: 20110218, end: 20110218

REACTIONS (7)
  - ERYTHEMA [None]
  - BACK PAIN [None]
  - ABDOMINAL PAIN [None]
  - EYE SWELLING [None]
  - DYSPNOEA [None]
  - INFUSION RELATED REACTION [None]
  - LIP SWELLING [None]
